FAERS Safety Report 14471589 (Version 5)
Quarter: 2018Q3

REPORT INFORMATION
  Report Type: Spontaneous
  Country: CA (occurrence: CA)
  Receive Date: 20180131
  Receipt Date: 20180810
  Transmission Date: 20181010
  Serious: Yes (Life-Threatening, Hospitalization, Other)
  Sender: FDA-Public Use
  Company Number: CA-PFIZER INC-2018025947

PATIENT
  Age: 68 Year
  Sex: Male
  Weight: 71 kg

DRUGS (8)
  1. XELJANZ [Suspect]
     Active Substance: TOFACITINIB CITRATE
     Indication: RHEUMATOID ARTHRITIS
     Dosage: 5 MG, 1X/DAY
     Route: 048
     Dates: start: 20180102, end: 201803
  2. HYDROMORPHONE [Concomitant]
     Active Substance: HYDROMORPHONE
     Indication: SPONDYLITIS
  3. RAPAFLO [Concomitant]
     Active Substance: SILODOSIN
     Dosage: UNK
  4. PENTOXIFYLLINE. [Concomitant]
     Active Substance: PENTOXIFYLLINE
     Indication: UROGENITAL DISORDER
     Dosage: UNK
  5. HYDROMORPHONE [Concomitant]
     Active Substance: HYDROMORPHONE
     Indication: BREAKTHROUGH PAIN
     Dosage: 2 MG, UNK
  6. PREDNISONE. [Concomitant]
     Active Substance: PREDNISONE
     Dosage: UNK
  7. HYDROMORPH CONTIN [Concomitant]
     Active Substance: HYDROMORPHONE
     Indication: SPONDYLITIS
     Dosage: 3 MG AM, 6 MG HS (BEFORE SLEEP)
  8. XELJANZ [Suspect]
     Active Substance: TOFACITINIB CITRATE
     Dosage: 5 MG, 2X/DAY
     Route: 048
     Dates: start: 20180305, end: 20180326

REACTIONS (11)
  - C-reactive protein increased [Unknown]
  - Drug ineffective [Recovered/Resolved]
  - Malaise [Unknown]
  - Lower respiratory tract infection [Not Recovered/Not Resolved]
  - Lung neoplasm malignant [Unknown]
  - Urinary tract disorder [Unknown]
  - Myalgia [Unknown]
  - Productive cough [Not Recovered/Not Resolved]
  - Fatigue [Recovered/Resolved]
  - Pulmonary congestion [Not Recovered/Not Resolved]
  - Haemoglobin decreased [Unknown]
